FAERS Safety Report 4972177-0 (Version None)
Quarter: 2006Q2

REPORT INFORMATION
  Report Type: 
  Country: None (occurrence: None)
  Receive Date: 20060413
  Receipt Date: 20060410
  Transmission Date: 20061013
  Serious: Yes (Hospitalization)
  Sender: FDA-Public Use
  Company Number: US-GLAXOSMITHKLINE-A0601163A

PATIENT
  Sex: Female

DRUGS (4)
  1. ADVAIR DISKUS 100/50 [Suspect]
     Indication: EMPHYSEMA
     Dosage: 1PUFF PER DAY
     Route: 055
  2. ALBUTEROL [Concomitant]
  3. NEBULIZER [Concomitant]
  4. OXYGEN [Concomitant]

REACTIONS (4)
  - DYSPNOEA [None]
  - INFLUENZA [None]
  - NASOPHARYNGITIS [None]
  - PAIN [None]
